FAERS Safety Report 7443037-0 (Version None)
Quarter: 2011Q2

REPORT INFORMATION
  Report Type: 
  Country: None (occurrence: None)
  Receive Date: 20110420
  Receipt Date: 20110405
  Transmission Date: 20111010
  Serious: Yes (Other)
  Sender: FDA-Public Use
  Company Number: US-1185018

PATIENT
  Age: 80 Year
  Sex: Male
  Weight: 79.3795 kg

DRUGS (3)
  1. NEVANAC [Suspect]
     Dosage: (TID OPHTHALMIC)
     Route: 047
     Dates: start: 20110202, end: 20110203
  2. PREDNISOLONE ACETATE [Suspect]
     Dosage: (TID OPHTHALMIC)
     Route: 047
     Dates: start: 20110202, end: 20110203
  3. ZYMAXID [Concomitant]

REACTIONS (7)
  - EYE PAIN [None]
  - POST PROCEDURAL COMPLICATION [None]
  - ANTIBIOTIC RESISTANT STAPHYLOCOCCUS TEST POSITIVE [None]
  - EYE IRRITATION [None]
  - ENDOPHTHALMITIS [None]
  - EYE INFLAMMATION [None]
  - PRODUCT CONTAMINATION [None]
